FAERS Safety Report 25277920 (Version 1)
Quarter: 2025Q2

REPORT INFORMATION
  Report Type: Spontaneous
  Country: US (occurrence: US)
  Receive Date: 20250507
  Receipt Date: 20250507
  Transmission Date: 20250716
  Serious: Yes (Other)
  Sender: AUROBINDO
  Company Number: US-AUROBINDO-AUR-APL-2025-023218

PATIENT
  Age: 84 Year
  Sex: Female

DRUGS (2)
  1. NEOSTIGMINE [Suspect]
     Active Substance: NEOSTIGMINE
     Indication: Intestinal pseudo-obstruction
     Route: 065
  2. PEMBROLIZUMAB [Concomitant]
     Active Substance: PEMBROLIZUMAB
     Indication: Bladder cancer
     Route: 065
     Dates: start: 2021

REACTIONS (1)
  - Drug ineffective [Unknown]
